FAERS Safety Report 19118059 (Version 2)
Quarter: 2021Q2

REPORT INFORMATION
  Report Type: Report from Study
  Country: US (occurrence: US)
  Receive Date: 20210409
  Receipt Date: 20210416
  Transmission Date: 20210717
  Serious: No
  Sender: FDA-Public Use
  Company Number: NVSC2021US080653

PATIENT
  Age: 70 Year
  Sex: Male

DRUGS (1)
  1. ENTRESTO [Suspect]
     Active Substance: SACUBITRIL\VALSARTAN
     Indication: CARDIAC FAILURE
     Dosage: 50 MG (24/26), BID
     Route: 048
     Dates: start: 20210402

REACTIONS (7)
  - Fall [Unknown]
  - Cough [Unknown]
  - Sensory loss [Unknown]
  - Dizziness [Unknown]
  - Gait disturbance [Unknown]
  - Balance disorder [Unknown]
  - Blood pressure decreased [Unknown]

NARRATIVE: CASE EVENT DATE: 20210413
